FAERS Safety Report 4873027-3 (Version None)
Quarter: 2005Q4

REPORT INFORMATION
  Report Type: 
  Country: None (occurrence: None)
  Receive Date: 20051201
  Receipt Date: 20050712
  Transmission Date: 20060501
  Serious: No
  Sender: FDA-Public Use
  Company Number: 2005PV000371

PATIENT
  Age: 38 Year
  Sex: Female
  Weight: 94.3482 kg

DRUGS (5)
  1. BYETTA [Suspect]
     Indication: DIABETES MELLITUS NON-INSULIN-DEPENDENT
     Dosage: 5 UG; BID; SC
     Route: 058
     Dates: start: 20050609
  2. AMARYL [Concomitant]
  3. SPIRONOLACTONE [Concomitant]
  4. ENALAPRIL [Concomitant]
  5. YASMIN [Concomitant]

REACTIONS (10)
  - BLOOD GLUCOSE DECREASED [None]
  - CHILLS [None]
  - CONFUSIONAL STATE [None]
  - DECREASED APPETITE [None]
  - DIZZINESS [None]
  - FEELING COLD [None]
  - HYPERHIDROSIS [None]
  - TINNITUS [None]
  - TREMOR [None]
  - WEIGHT DECREASED [None]
